FAERS Safety Report 4634796-0 (Version None)
Quarter: 2005Q2

REPORT INFORMATION
  Report Type: 
  Country: None (occurrence: None)
  Receive Date: 20050412
  Receipt Date: 20050412
  Transmission Date: 20051028
  Serious: Yes (Hospitalization)
  Sender: FDA-Public Use
  Company Number: None

PATIENT
  Age: 56 Year
  Sex: Male
  Weight: 105.6881 kg

DRUGS (2)
  1. GATIFLOXACIN [Suspect]
     Indication: PNEUMONIA
     Dosage: 200 MG Q DAY   INTRAVENOU
     Route: 042
     Dates: start: 20050319, end: 20050321
  2. VANCOMYCIN [Suspect]
     Indication: OSTEOMYELITIS
     Dosage: BY LEVELS   DAILY   INTRAVENOU
     Route: 042
     Dates: start: 20050226, end: 20050405

REACTIONS (1)
  - DIARRHOEA [None]
